FAERS Safety Report 15323159 (Version 9)
Quarter: 2019Q1

REPORT INFORMATION
  Report Type: Report from Study
  Country: CA (occurrence: CA)
  Receive Date: 20180827
  Receipt Date: 20190211
  Transmission Date: 20190417
  Serious: Yes (Other)
  Sender: FDA-Public Use
  Company Number: CA-JNJFOC-20180822698

PATIENT
  Age: 41 Year
  Sex: Female

DRUGS (4)
  1. STELARA [Suspect]
     Active Substance: USTEKINUMAB
     Indication: CROHN^S DISEASE
     Route: 058
     Dates: start: 20180424
  2. STELARA [Suspect]
     Active Substance: USTEKINUMAB
     Indication: CROHN^S DISEASE
     Dosage: STRENGTH = 90 MG
     Route: 058
     Dates: start: 20180504
  3. FLAGYL [Suspect]
     Active Substance: METRONIDAZOLE\METRONIDAZOLE HYDROCHLORIDE
     Indication: PRODUCT USED FOR UNKNOWN INDICATION
     Route: 065
  4. STELARA [Suspect]
     Active Substance: USTEKINUMAB
     Indication: CROHN^S DISEASE
     Route: 058
     Dates: start: 20180629

REACTIONS (11)
  - Off label use [Unknown]
  - Product use issue [Unknown]
  - Nausea [Unknown]
  - Abdominal pain [Not Recovered/Not Resolved]
  - General physical health deterioration [Unknown]
  - Frequent bowel movements [Not Recovered/Not Resolved]
  - Chills [Recovered/Resolved]
  - Weight decreased [Unknown]
  - Abscess [Unknown]
  - Abdominal distension [Unknown]
  - Influenza [Unknown]

NARRATIVE: CASE EVENT DATE: 2018
